FAERS Safety Report 4613293-2 (Version None)
Quarter: 2005Q1

REPORT INFORMATION
  Report Type: 
  Country: None (occurrence: None)
  Receive Date: 20050315
  Receipt Date: 20050307
  Transmission Date: 20050727
  Serious: Yes (Death, Life-Threatening)
  Sender: FDA-Public Use
  Company Number: 200510562GDS

PATIENT
  Age: 82 Year
  Sex: Female

DRUGS (5)
  1. CIPROFLOXACIN [Suspect]
     Indication: URINARY TRACT INFECTION
     Dosage: 500 MG, BID, ORAL
     Route: 048
     Dates: start: 20050204, end: 20050205
  2. SINTROM [Suspect]
  3. TAPAZOLE [Concomitant]
  4. LANOXIN [Concomitant]
  5. ISOPTIN [Concomitant]

REACTIONS (6)
  - ACTIVATED PARTIAL THROMBOPLASTIN TIME PROLONGED [None]
  - ANTIPHOSPHOLIPID ANTIBODIES POSITIVE [None]
  - CEREBELLAR INFARCTION [None]
  - FACTOR V DEFICIENCY [None]
  - PROTHROMBIN TIME PROLONGED [None]
  - THERAPY NON-RESPONDER [None]
